FAERS Safety Report 8174980-5 (Version None)
Quarter: 2012Q1

REPORT INFORMATION
  Report Type: 
  Country: None (occurrence: None)
  Receive Date: 20120229
  Receipt Date: 20120220
  Transmission Date: 20120608
  Serious: Yes (Other)
  Sender: FDA-Public Use
  Company Number: PHHY2012BG016824

PATIENT
  Age: 54 Year
  Sex: Female

DRUGS (1)
  1. ZOMETA [Suspect]
     Indication: ENDOMETRIAL CANCER METASTATIC
     Dosage: 4 MG, QMO
     Route: 042

REACTIONS (5)
  - OSTEONECROSIS OF JAW [None]
  - PAIN IN JAW [None]
  - EXPOSED BONE IN JAW [None]
  - GINGIVAL SWELLING [None]
  - MUCOSAL HYPERAEMIA [None]
